FAERS Safety Report 9817878 (Version 1)
Quarter: 2014Q1

REPORT INFORMATION
  Report Type: Spontaneous
  Country: BR (occurrence: BR)
  Receive Date: 20140115
  Receipt Date: 20140115
  Transmission Date: 20141002
  Serious: Yes (Other)
  Sender: FDA-Public Use
  Company Number: PHHY2014BR003005

PATIENT
  Age: 51 Year
  Sex: Male
  Weight: 94 kg

DRUGS (4)
  1. DIOVAN AMLO FIX [Suspect]
     Indication: HYPERTENSION
     Dosage: 1 DF (320MG VALS AND 5MG AMLO), QD
     Route: 048
  2. DIOVAN [Suspect]
     Indication: HYPERTENSION
     Dosage: 1 DF (160MG), DAILY IN THE MORNING
     Route: 048
  3. DIOVAN [Suspect]
     Dosage: 1 DF (320MG), QD
     Route: 048
  4. JANUMET [Suspect]
     Indication: DIABETES MELLITUS
     Dosage: 1 DF (850MG METF AND 50MG VILDA), BID
     Route: 048

REACTIONS (6)
  - Hepatic steatosis [Not Recovered/Not Resolved]
  - Hepatomegaly [Not Recovered/Not Resolved]
  - Cholelithiasis [Unknown]
  - Pain [Recovered/Resolved]
  - Blood pressure decreased [Recovered/Resolved]
  - Serum ferritin increased [Not Recovered/Not Resolved]
